FAERS Safety Report 7516244-6 (Version None)
Quarter: 2011Q2

REPORT INFORMATION
  Report Type: 
  Country: None (occurrence: None)
  Receive Date: 20110601
  Receipt Date: 20110524
  Transmission Date: 20111010
  Serious: Yes (Hospitalization)
  Sender: FDA-Public Use
  Company Number: CH-NOVOPROD-328877

PATIENT
  Age: 70 Year
  Sex: Female

DRUGS (6)
  1. PREDNISOLONE [Concomitant]
     Dosage: 5 MG, QD
     Route: 048
  2. IRBESARTAN [Concomitant]
     Dosage: 150 MG, QD
     Route: 048
  3. PANTOZOL                           /01263202/ [Concomitant]
     Dosage: 20 MG, QD
     Route: 048
  4. ESTROFEM [Suspect]
     Indication: PRODUCT USED FOR UNKNOWN INDICATION
     Dosage: 2 MG, QD
     Route: 048
     Dates: end: 20110315
  5. TORSEMIDE [Concomitant]
     Dosage: 5 MG, QD
     Route: 048
  6. OLFEN                              /00372302/ [Concomitant]
     Dosage: 100 MG, QD
     Route: 054

REACTIONS (3)
  - CHEST PAIN [None]
  - SINUS TACHYCARDIA [None]
  - PULMONARY EMBOLISM [None]
